FAERS Safety Report 9431372 (Version 5)
Quarter: 2014Q3

REPORT INFORMATION
  Report Type: Report from Study
  Country: US (occurrence: US)
  Receive Date: 20130730
  Receipt Date: 20140826
  Transmission Date: 20150326
  Serious: Yes (Hospitalization, Other)
  Sender: FDA-Public Use
  Company Number: US-ALEXION PHARMACEUTICALS INC.-A201301734

PATIENT

DRUGS (4)
  1. PAIN MEDICATION [Concomitant]
     Active Substance: UNSPECIFIED INGREDIENT
     Indication: PRODUCT USED FOR UNKNOWN INDICATION
     Route: 065
  2. SOLIRIS [Suspect]
     Active Substance: ECULIZUMAB
     Dosage: 1200 MG, UNK
     Route: 042
     Dates: start: 20130809
  3. SOLIRIS [Suspect]
     Active Substance: ECULIZUMAB
     Indication: HAEMOLYTIC URAEMIC SYNDROME
     Dosage: UNK
     Route: 042
     Dates: start: 20130622, end: 20130702
  4. SOLIRIS [Suspect]
     Active Substance: ECULIZUMAB
     Dosage: 900 MG, UNK
     Route: 042
     Dates: start: 20130712

REACTIONS (9)
  - Gastrointestinal haemorrhage [Recovered/Resolved]
  - Renal impairment [Recovering/Resolving]
  - Weight decreased [Unknown]
  - Gallbladder enlargement [Recovered/Resolved]
  - Multi-organ failure [Recovered/Resolved]
  - Pulmonary oedema [Unknown]
  - Lung infiltration [Unknown]
  - Thrombotic microangiopathy [Unknown]
  - Anticoagulation drug level abnormal [Unknown]

NARRATIVE: CASE EVENT DATE: 20130712
